FAERS Safety Report 6865556-8 (Version None)
Quarter: 2010Q3

REPORT INFORMATION
  Report Type: 
  Country: None (occurrence: None)
  Receive Date: 20100721
  Receipt Date: 20080721
  Transmission Date: 20110219
  Serious: No
  Sender: FDA-Public Use
  Company Number: US-PFIZER INC-2008037561

PATIENT
  Sex: Female
  Weight: 79.5 kg

DRUGS (6)
  1. CHANTIX [Suspect]
     Indication: SMOKING CESSATION THERAPY
     Dates: start: 20080412
  2. THYROID TAB [Concomitant]
     Indication: THYROID DISORDER
  3. AVAPRO [Concomitant]
     Indication: HYPERTENSION
  4. ZETIA [Concomitant]
     Indication: BLOOD CHOLESTEROL INCREASED
  5. ESTROGENS [Concomitant]
  6. CLARITIN [Concomitant]
     Indication: SINUS DISORDER

REACTIONS (2)
  - DIZZINESS [None]
  - HEAD DISCOMFORT [None]
